FAERS Safety Report 8556642-5 (Version None)
Quarter: 2012Q3

REPORT INFORMATION
  Report Type: 
  Country: None (occurrence: None)
  Receive Date: 20120801
  Receipt Date: 20120723
  Transmission Date: 20120928
  Serious: No
  Sender: FDA-Public Use
  Company Number: US-009507513-1207USA010980

PATIENT

DRUGS (7)
  1. FLOMAX [Concomitant]
  2. ANDROGEL [Suspect]
  3. COZAAR [Concomitant]
     Route: 048
  4. TRENTAL [Concomitant]
  5. ZOCOR [Suspect]
     Route: 048
  6. SYNTHROID [Concomitant]
  7. ASPIRIN [Concomitant]

REACTIONS (3)
  - MUSCULAR WEAKNESS [None]
  - MOBILITY DECREASED [None]
  - PRURITUS [None]
